FAERS Safety Report 9060714 (Version 1)
Quarter: 2013Q1

REPORT INFORMATION
  Report Type: Report from Study
  Country: CA (occurrence: CA)
  Receive Date: 20130204
  Receipt Date: 20130204
  Transmission Date: 20140127
  Serious: Yes (Hospitalization)
  Sender: FDA-Public Use
  Company Number: CA-ROCHE-1186923

PATIENT
  Age: 53 None
  Sex: Female

DRUGS (6)
  1. RITUXAN [Suspect]
     Indication: IDIOPATHIC THROMBOCYTOPENIC PURPURA
     Route: 042
     Dates: start: 20130108
  2. DOCUSATE SODIUM [Concomitant]
     Route: 065
  3. SULFOTRIM [Concomitant]
  4. CYKLOKAPRON [Concomitant]
  5. TRANEXAMIC ACID [Concomitant]
  6. PREDNISONE [Concomitant]

REACTIONS (1)
  - Platelet count decreased [Unknown]
